FAERS Safety Report 6991850-6 (Version None)
Quarter: 2010Q3

REPORT INFORMATION
  Report Type: 
  Country: None (occurrence: None)
  Receive Date: 20100917
  Receipt Date: 20100907
  Transmission Date: 20110219
  Serious: Yes (Hospitalization)
  Sender: FDA-Public Use
  Company Number: JP-PFIZER INC-2010113578

PATIENT
  Age: 72 Year
  Sex: Female

DRUGS (4)
  1. AZULFIDINE [Suspect]
     Indication: RHEUMATOID ARTHRITIS
     Dosage: 1000 MG/DAY
     Route: 048
     Dates: start: 20100810, end: 20100826
  2. RHEUMATREX [Suspect]
     Indication: RHEUMATOID ARTHRITIS
     Dosage: 6 MG FOR 2 DAYS
     Route: 048
     Dates: start: 20100809, end: 20100826
  3. WARFARIN [Concomitant]
     Dosage: 1.5 MG/DAY
     Route: 048
  4. PREDNISOLONE [Concomitant]
     Dosage: 5 MG/DAY
     Route: 048

REACTIONS (1)
  - PANCYTOPENIA [None]
